FAERS Safety Report 14020814 (Version 4)
Quarter: 2018Q1

REPORT INFORMATION
  Report Type: Spontaneous
  Country: SA (occurrence: SA)
  Receive Date: 20170928
  Receipt Date: 20180220
  Transmission Date: 20180508
  Serious: Yes (Death, Other)
  Sender: FDA-Public Use
  Company Number: PHHY2017SA142406

PATIENT
  Sex: Female
  Weight: 72 kg

DRUGS (6)
  1. RANITIDINE. [Concomitant]
     Active Substance: RANITIDINE
     Indication: PREMEDICATION
     Dosage: UNK
     Route: 065
  2. EBETAXEL [Suspect]
     Active Substance: PACLITAXEL
     Dosage: 300 MG (IN 500MG NORMAL SALINE)
     Route: 065
  3. EBETAXEL [Suspect]
     Active Substance: PACLITAXEL
     Dosage: 358 ML, UNK
     Route: 042
  4. DEXAMETHASONE. [Concomitant]
     Active Substance: DEXAMETHASONE
     Indication: PREMEDICATION
     Dosage: UNK
     Route: 065
  5. DIPHENHYDRAMINE. [Concomitant]
     Active Substance: DIPHENHYDRAMINE
     Indication: PREMEDICATION
     Dosage: UNK
     Route: 065
  6. EBETAXEL [Suspect]
     Active Substance: PACLITAXEL
     Indication: ENDOMETRIAL ADENOCARCINOMA
     Dosage: 245 MG, UNK
     Route: 042

REACTIONS (7)
  - Agitation [Fatal]
  - Flushing [Fatal]
  - Hypersensitivity [Fatal]
  - Erythema [Fatal]
  - Respiratory arrest [Fatal]
  - Loss of consciousness [Fatal]
  - Anaphylactic shock [Fatal]
